FAERS Safety Report 4588319-5 (Version None)
Quarter: 2005Q1

REPORT INFORMATION
  Report Type: 
  Country: None (occurrence: None)
  Receive Date: 20050216
  Receipt Date: 20040204
  Transmission Date: 20050727
  Serious: No
  Sender: FDA-Public Use
  Company Number: 2005AP01008

PATIENT
  Sex: Female

DRUGS (9)
  1. PROPOFOL [Suspect]
     Indication: SENSORY DISTURBANCE
     Dosage: 50 MG ONCE IV
     Route: 042
     Dates: start: 20040622, end: 20040622
  2. MIDAZOLAM [Suspect]
     Indication: SENSORY DISTURBANCE
     Dosage: 3 MG ONCE IV
     Route: 042
     Dates: start: 20040622, end: 20040622
  3. CEFOTAXIME SODIUM [Concomitant]
  4. FLAGYL [Concomitant]
  5. PHENYLEPHRINE [Concomitant]
  6. EPHEDRINE SUL CAP [Concomitant]
  7. CLEXANE [Concomitant]
  8. MORPHINE SULFATE [Suspect]
     Indication: SENSORY DISTURBANCE
     Dosage: 10 MG ONCE IV
     Route: 042
     Dates: start: 20040622, end: 20040622
  9. KETAMINE HCL [Suspect]
     Indication: SENSORY DISTURBANCE
     Dosage: 150MG ONCE IV
     Dates: start: 20040622, end: 20040622

REACTIONS (3)
  - CREPITATIONS [None]
  - RESPIRATORY DISORDER [None]
  - STRIDOR [None]
